FAERS Safety Report 9579852 (Version 2)
Quarter: 2013Q4

REPORT INFORMATION
  Report Type: Spontaneous
  Country: DE (occurrence: DE)
  Receive Date: 20131002
  Receipt Date: 20131002
  Transmission Date: 20140711
  Serious: Yes (Other)
  Sender: FDA-Public Use
  Company Number: DE-AMGEN-DEUSP2013005076

PATIENT
  Age: 68 Year
  Sex: Female
  Weight: 52 kg

DRUGS (2)
  1. PROLIA [Suspect]
     Indication: OSTEOPOROSIS POSTMENOPAUSAL
     Dosage: 60 MG, UNK
     Route: 058
     Dates: start: 20130111
  2. VIGANTOLETTEN [Concomitant]
     Indication: OSTEOPOROSIS
     Dosage: 2000 IU, UNK
     Route: 048
     Dates: start: 201112

REACTIONS (14)
  - Fibula fracture [Unknown]
  - Micturition urgency [Not Recovered/Not Resolved]
  - Back pain [Recovering/Resolving]
  - Muscle spasms [Unknown]
  - Urinary incontinence [Not Recovered/Not Resolved]
  - Hypokinesia [Not Recovered/Not Resolved]
  - Defaecation urgency [Unknown]
  - Fall [Unknown]
  - Gait disturbance [Unknown]
  - Myalgia [Unknown]
  - Ligament rupture [Unknown]
  - Myosclerosis [Unknown]
  - Sciatica [Unknown]
  - Musculoskeletal pain [Unknown]
